FAERS Safety Report 5387456-5 (Version None)
Quarter: 2007Q3

REPORT INFORMATION
  Report Type: 
  Country: None (occurrence: None)
  Receive Date: 20070712
  Receipt Date: 20070703
  Transmission Date: 20080115
  Serious: Yes (Life-Threatening)
  Sender: FDA-Public Use
  Company Number: 2007-02257

PATIENT
  Age: 72 Year
  Sex: Male

DRUGS (7)
  1. VELCADE [Suspect]
     Indication: MULTIPLE MYELOMA
     Dosage: 2.20 MG/M2, INTRAVENOUS
     Route: 042
     Dates: start: 20070416, end: 20070426
  2. PROCEPHINE (CEFTRIAXONE) [Concomitant]
  3. VOGALENE (METOPIMAZINE) [Concomitant]
  4. DURAGESIC-100 [Concomitant]
  5. DEXAMETHASONE 0.5MG TAB [Concomitant]
  6. FLUCONAZOLE [Concomitant]
  7. RULID (ROXITHROMYCIN) [Concomitant]

REACTIONS (7)
  - ANOREXIA [None]
  - BEDRIDDEN [None]
  - DECEREBRATION [None]
  - ENCEPHALOPATHY [None]
  - GENERAL PHYSICAL HEALTH DETERIORATION [None]
  - LEUKOARAIOSIS [None]
  - PYREXIA [None]
